FAERS Safety Report 20702120 (Version 1)
Quarter: 2022Q2

REPORT INFORMATION
  Report Type: Other
  Country: US (occurrence: US)
  Receive Date: 20220412
  Receipt Date: 20220412
  Transmission Date: 20220721
  Serious: Yes (Life-Threatening, Hospitalization, Other)
  Sender: FDA-Public Use
  Company Number: US-DENTSPLY-2022SCDP000087

PATIENT
  Age: 16 Year
  Sex: Male

DRUGS (3)
  1. LIDOCAINE\PRILOCAINE [Suspect]
     Active Substance: LIDOCAINE\PRILOCAINE
     Indication: Local anaesthesia
     Dosage: 2.5 % LIDOCAINE, 2.5 % PRILOCAINE EUTETIC MIXTURE CREAM
     Route: 061
  2. LIDOCAINE [Suspect]
     Active Substance: LIDOCAINE
     Indication: Local anaesthesia
     Dosage: 2 % VISCOUS LIDOCAINE
     Route: 061
  3. BENZOCAINE [Suspect]
     Active Substance: BENZOCAINE
     Indication: Local anaesthesia
     Dosage: 20 % HURRICAINE CUTANEOUS SPRAY
     Route: 061

REACTIONS (2)
  - Respiratory distress [Recovered/Resolved]
  - Methaemoglobinaemia [Recovered/Resolved]
